FAERS Safety Report 6928852-1 (Version None)
Quarter: 2010Q3

REPORT INFORMATION
  Report Type: 
  Country: None (occurrence: None)
  Receive Date: 20100806
  Receipt Date: 20090629
  Transmission Date: 20110219
  Serious: No
  Sender: FDA-Public Use
  Company Number: 2009-00230

PATIENT
  Age: 80 Year
  Sex: Female
  Weight: 90.7194 kg

DRUGS (4)
  1. ZICAM COLD REMEDY NASAL GEL [Suspect]
     Dates: start: 20090401, end: 20090401
  2. DIOVAN [Concomitant]
  3. COREG [Concomitant]
  4. LIPITOR [Concomitant]

REACTIONS (1)
  - ANOSMIA [None]
